FAERS Safety Report 5264309-4 (Version None)
Quarter: 2007Q1

REPORT INFORMATION
  Report Type: 
  Country: None (occurrence: None)
  Receive Date: 20070302
  Receipt Date: 20070220
  Transmission Date: 20070707
  Serious: Yes (Hospitalization)
  Sender: FDA-Public Use
  Company Number: 2007308037

PATIENT
  Age: 12 Year
  Sex: Male

DRUGS (1)
  1. MINOXIDIL [Suspect]
     Indication: ALOPECIA AREATA
     Dosage: 1 ML EVERY 12 HOURS (1 ML, 2 IN 1 D), TOPICAL
     Route: 061

REACTIONS (3)
  - DISCOMFORT [None]
  - PALPITATIONS [None]
  - SINUS TACHYCARDIA [None]
